FAERS Safety Report 9045968 (Version 3)
Quarter: 2013Q1

REPORT INFORMATION
  Report Type: Spontaneous
  Country: US (occurrence: US)
  Receive Date: 20130125
  Receipt Date: 20130305
  Transmission Date: 20140127
  Serious: Yes (Other)
  Sender: FDA-Public Use
  Company Number: US-ABBOTT-12P-163-1018051-00

PATIENT
  Age: 45 None
  Sex: Male
  Weight: 108.96 kg

DRUGS (2)
  1. HUMIRA [Suspect]
     Indication: PSORIASIS
     Dates: start: 20090602, end: 20110228
  2. STELARA [Concomitant]
     Dates: start: 20110328, end: 20110503

REACTIONS (10)
  - Basal cell carcinoma [Recovered/Resolved]
  - Paralytic lagophthalmos [Unknown]
  - Cerebral haemorrhage [Unknown]
  - Cerebral venous thrombosis [Unknown]
  - Haemorrhagic infarction [Unknown]
  - Mydriasis [Unknown]
  - Decerebration [Unknown]
  - Eye irritation [Unknown]
  - Sensation of foreign body [Unknown]
  - Lacrimation increased [Unknown]
